FAERS Safety Report 25854126 (Version 1)
Quarter: 2025Q3

REPORT INFORMATION
  Report Type: Spontaneous
  Country: US (occurrence: US)
  Receive Date: 20250926
  Receipt Date: 20250926
  Transmission Date: 20251020
  Serious: No
  Sender: PFIZER
  Company Number: US-PFIZER INC-202300310957

PATIENT
  Age: 78 Year
  Sex: Male

DRUGS (7)
  1. PAXLOVID [Suspect]
     Active Substance: NIRMATRELVIR\RITONAVIR
     Indication: COVID-19 treatment
     Dates: start: 20230914, end: 20230918
  2. SIMVASTATIN [Concomitant]
     Active Substance: SIMVASTATIN
  3. POTASSIUM CHLORIDE [Concomitant]
     Active Substance: POTASSIUM CHLORIDE
  4. HYZAAR [Concomitant]
     Active Substance: HYDROCHLOROTHIAZIDE\LOSARTAN POTASSIUM
  5. AMLODIPINE [Concomitant]
     Active Substance: AMLODIPINE BESYLATE
  6. PEPCID [Concomitant]
     Active Substance: FAMOTIDINE
  7. NAPROSYN [Concomitant]
     Active Substance: NAPROXEN

REACTIONS (1)
  - Contraindicated product administered [Unknown]
